FAERS Safety Report 18887607 (Version 1)
Quarter: 2021Q1

REPORT INFORMATION
  Report Type: Report from Study
  Country: None (occurrence: CA)
  Receive Date: 20210213
  Receipt Date: 20210213
  Transmission Date: 20210420
  Serious: Yes (Hospitalization, Other)
  Sender: FDA-Public Use
  Company Number: CA-ABBVIE-19K-028-2802762-00

PATIENT
  Age: 64 Year
  Sex: Female

DRUGS (3)
  1. HUMIRA [Suspect]
     Active Substance: ADALIMUMAB
     Route: 058
     Dates: start: 20200203
  2. HUMIRA [Suspect]
     Active Substance: ADALIMUMAB
     Route: 058
     Dates: start: 2019, end: 2019
  3. HUMIRA [Suspect]
     Active Substance: ADALIMUMAB
     Indication: CROHN^S DISEASE
     Route: 058
     Dates: start: 20161201, end: 2019

REACTIONS (37)
  - Pain in extremity [Not Recovered/Not Resolved]
  - Nasopharyngitis [Unknown]
  - Burning sensation [Unknown]
  - Pelvic pain [Unknown]
  - Feeling abnormal [Unknown]
  - Gastric disorder [Unknown]
  - Nausea [Unknown]
  - Treatment noncompliance [Unknown]
  - Impaired quality of life [Unknown]
  - Peripheral swelling [Not Recovered/Not Resolved]
  - Arthritis infective [Unknown]
  - Constipation [Unknown]
  - Cystitis [Unknown]
  - Arthralgia [Not Recovered/Not Resolved]
  - Dysgraphia [Unknown]
  - Arthralgia [Unknown]
  - Sepsis [Not Recovered/Not Resolved]
  - Mobility decreased [Unknown]
  - Incontinence [Unknown]
  - Burning sensation [Not Recovered/Not Resolved]
  - Pyrexia [Unknown]
  - Arthropathy [Unknown]
  - Abdominal discomfort [Unknown]
  - Influenza like illness [Unknown]
  - Crohn^s disease [Not Recovered/Not Resolved]
  - Tooth disorder [Not Recovered/Not Resolved]
  - Drug delivery device placement [Unknown]
  - Osteomyelitis [Unknown]
  - Arthritis [Not Recovered/Not Resolved]
  - Fatigue [Unknown]
  - Bladder disorder [Unknown]
  - Cough [Unknown]
  - Unevaluable event [Unknown]
  - Gingival disorder [Not Recovered/Not Resolved]
  - Dental caries [Unknown]
  - Asthenia [Unknown]
  - Dysstasia [Unknown]

NARRATIVE: CASE EVENT DATE: 2019
